FAERS Safety Report 4409873-X (Version None)
Quarter: 2004Q3

REPORT INFORMATION
  Report Type: 
  Country: None (occurrence: None)
  Receive Date: 20040727
  Receipt Date: 20040722
  Transmission Date: 20050211
  Serious: Yes (Death)
  Sender: FDA-Public Use
  Company Number: 04-07-1054

PATIENT
  Age: 77 Year
  Sex: Female

DRUGS (1)
  1. CLOZAPINE [Suspect]
     Indication: SCHIZOPHRENIA
     Dosage: 25-300MG QD ORAL
     Route: 048
     Dates: start: 20010201, end: 20040601

REACTIONS (2)
  - BREAST CANCER [None]
  - GASTROINTESTINAL HAEMORRHAGE [None]
